FAERS Safety Report 9841885 (Version 2)
Quarter: 2014Q3

REPORT INFORMATION
  Report Type: Spontaneous
  Country: US (occurrence: US)
  Receive Date: 20140124
  Receipt Date: 20140807
  Transmission Date: 20150326
  Serious: Yes (Hospitalization, Other)
  Sender: FDA-Public Use
  Company Number: US-009507513-1401USA010102

PATIENT
  Sex: Female

DRUGS (1)
  1. NUVARING [Suspect]
     Active Substance: ETHINYL ESTRADIOL\ETONOGESTREL
     Indication: CONTRACEPTION
     Dosage: 3 WEEKS IN, ONE WEEK OUT
     Route: 067
     Dates: start: 20080505

REACTIONS (8)
  - Superior sagittal sinus thrombosis [Unknown]
  - Pulmonary embolism [Unknown]
  - Head injury [Unknown]
  - Fall [Unknown]
  - Deep vein thrombosis [Unknown]
  - Sinus polyp [Unknown]
  - Rheumatoid arthritis [Unknown]
  - Drug ineffective [Unknown]

NARRATIVE: CASE EVENT DATE: 200901
